FAERS Safety Report 7685556-8 (Version None)
Quarter: 2011Q3

REPORT INFORMATION
  Report Type: 
  Country: None (occurrence: None)
  Receive Date: 20110812
  Receipt Date: 20110812
  Transmission Date: 20111222
  Serious: No
  Sender: FDA-Public Use
  Company Number: None

PATIENT
  Sex: Female
  Weight: 64.8644 kg

DRUGS (1)
  1. SORIATANE [Suspect]
     Indication: PSORIASIS
     Dosage: 25 MG 1X DAY
     Dates: start: 20100908, end: 20110415

REACTIONS (10)
  - DRY EYE [None]
  - FATIGUE [None]
  - VULVOVAGINAL PRURITUS [None]
  - LIP DRY [None]
  - HAIR TEXTURE ABNORMAL [None]
  - PRURITUS GENERALISED [None]
  - PHOTOPHOBIA [None]
  - ALOPECIA [None]
  - BLISTER [None]
  - POLLAKIURIA [None]
